FAERS Safety Report 14925272 (Version 3)
Quarter: 2018Q3

REPORT INFORMATION
  Report Type: Spontaneous
  Country: US (occurrence: LV)
  Receive Date: 20180522
  Receipt Date: 20180710
  Transmission Date: 20181010
  Serious: No
  Sender: FDA-Public Use
  Company Number: LV-BAUSCH-BL-2018-014138

PATIENT
  Age: 72 Year
  Sex: Male

DRUGS (25)
  1. CEFTRIAXONE. [Suspect]
     Active Substance: CEFTRIAXONE
     Indication: NECROTISING FASCIITIS
  2. DICLOFENAC SODIUM. [Concomitant]
     Active Substance: DICLOFENAC SODIUM
     Indication: POST PROCEDURAL COMPLICATION
     Dosage: 75 MG/3 ML X 2
     Route: 042
     Dates: start: 20101124
  3. IBUPROFEN. [Concomitant]
     Active Substance: IBUPROFEN
     Indication: ANALGESIC THERAPY
     Route: 065
     Dates: start: 2010, end: 2010
  4. GELOFUSINE [Concomitant]
     Active Substance: GELATIN\SODIUM CHLORIDE
     Indication: POST PROCEDURAL COMPLICATION
     Route: 065
     Dates: start: 2010
  5. DIAZEPAM. [Concomitant]
     Active Substance: DIAZEPAM
     Indication: SEDATION
     Dosage: 0.5 PERCENT ? 5ML
     Route: 042
     Dates: start: 2010
  6. DALACIN C [Suspect]
     Active Substance: CLINDAMYCIN PHOSPHATE
     Indication: POST PROCEDURAL COMPLICATION
     Route: 065
     Dates: start: 2010
  7. DALACIN C [Suspect]
     Active Substance: CLINDAMYCIN PHOSPHATE
     Route: 065
  8. FLUCONAZOLE. [Concomitant]
     Active Substance: FLUCONAZOLE
     Indication: NECROTISING FASCIITIS
  9. TRAMADOL. [Concomitant]
     Active Substance: TRAMADOL
     Indication: POSTOPERATIVE ANALGESIA
     Route: 030
     Dates: start: 20101127
  10. BETALOC ZOK [Concomitant]
     Active Substance: METOPROLOL SUCCINATE
     Indication: HYPERTENSION
     Route: 065
  11. CEPHAZOLIN [Suspect]
     Active Substance: CEFAZOLIN
     Route: 042
  12. CORDARONE [Concomitant]
     Active Substance: AMIODARONE HYDROCHLORIDE
     Indication: HEART RATE ABNORMAL
     Route: 065
  13. DEXAMETHASONE. [Concomitant]
     Active Substance: DEXAMETHASONE
     Indication: POST PROCEDURAL COMPLICATION
     Route: 042
     Dates: start: 2010
  14. AMPICILLIN [Suspect]
     Active Substance: AMPICILLIN
     Indication: NECROTISING FASCIITIS
  15. METROGYL [Suspect]
     Active Substance: METRONIDAZOLE
     Indication: POST PROCEDURAL COMPLICATION
     Dosage: FIRST DOSE 15MG/KG, FURTHER 500MG EVERY 8 HOURS
     Route: 065
     Dates: start: 2010
  16. METROGYL [Suspect]
     Active Substance: METRONIDAZOLE
     Indication: NECROTISING FASCIITIS
     Route: 065
  17. FLUCONAZOLE. [Concomitant]
     Active Substance: FLUCONAZOLE
     Indication: POST PROCEDURAL COMPLICATION
     Route: 065
     Dates: start: 2010
  18. GLUCOSE [Concomitant]
     Active Substance: DEXTROSE
     Indication: POST PROCEDURAL COMPLICATION
     Route: 065
     Dates: start: 2010
  19. CEFTRIAXONE. [Suspect]
     Active Substance: CEFTRIAXONE
     Indication: POST PROCEDURAL COMPLICATION
     Route: 065
     Dates: start: 2010
  20. CEPHAZOLIN [Suspect]
     Active Substance: CEFAZOLIN
     Indication: PREOPERATIVE CARE
     Route: 042
     Dates: start: 20101124, end: 2010
  21. AMPICILLIN [Suspect]
     Active Substance: AMPICILLIN
     Indication: POST PROCEDURAL COMPLICATION
     Route: 065
     Dates: start: 2010
  22. CEPHAZOLIN [Suspect]
     Active Substance: CEFAZOLIN
     Dosage: 1G, SINGLE DOSE
     Route: 042
  23. GENTAMICIN. [Suspect]
     Active Substance: GENTAMICIN
     Indication: POST PROCEDURAL COMPLICATION
     Route: 065
     Dates: start: 2010, end: 2010
  24. AMOXICLAV [Suspect]
     Active Substance: AMOXICILLIN\CLAVULANIC ACID
     Indication: POST PROCEDURAL COMPLICATION
     Dosage: 500 MG PLUS 100 MG
     Route: 065
     Dates: start: 2010
  25. CHLORHEXIDINE [Concomitant]
     Active Substance: CHLORHEXIDINE
     Indication: POST PROCEDURAL COMPLICATION
     Route: 048
     Dates: start: 20101124

REACTIONS (1)
  - Diarrhoea [Unknown]

NARRATIVE: CASE EVENT DATE: 2010
